FAERS Safety Report 10227333 (Version 2)
Quarter: 2014Q2

REPORT INFORMATION
  Report Type: Spontaneous
  Country: GB (occurrence: GB)
  Receive Date: 20140610
  Receipt Date: 20140618
  Transmission Date: 20141212
  Serious: Yes (Other)
  Sender: FDA-Public Use
  Company Number: GB-JNJFOC-20140518231

PATIENT
  Age: 1 Week
  Sex: Male
  Weight: .67 kg

DRUGS (2)
  1. IBUPROFEN [Suspect]
     Indication: PATENT DUCTUS ARTERIOSUS
     Dosage: 10 MG/KG ON DAY 1
     Route: 042
     Dates: start: 20140221
  2. CUROSURF (PHOSPHOLIPID FRACTION, PORCINE LUNG/SODIUM CHLORIDE) [Concomitant]
     Indication: PRODUCT USED FOR UNKNOWN INDICATION
     Route: 065

REACTIONS (3)
  - Necrotising colitis [Recovering/Resolving]
  - Intestinal perforation [Recovering/Resolving]
  - Off label use [Unknown]
